FAERS Safety Report 8344761-8 (Version None)
Quarter: 2012Q2

REPORT INFORMATION
  Report Type: 
  Country: None (occurrence: None)
  Receive Date: 20120508
  Receipt Date: 20120430
  Transmission Date: 20120825
  Serious: Yes (Hospitalization)
  Sender: FDA-Public Use
  Company Number: US-ASTRAZENECA-2010SE56666

PATIENT
  Age: 55 Year
  Sex: Female

DRUGS (2)
  1. SYMBICORT [Suspect]
     Route: 055
  2. RHINOCORT [Suspect]
     Route: 045

REACTIONS (4)
  - ASTHMA [None]
  - RESPIRATORY TRACT IRRITATION [None]
  - OBSTRUCTIVE AIRWAYS DISORDER [None]
  - INTENTIONAL DRUG MISUSE [None]
